FAERS Safety Report 6396672-5 (Version None)
Quarter: 2009Q4

REPORT INFORMATION
  Report Type: 
  Country: None (occurrence: None)
  Receive Date: 20091012
  Receipt Date: 20091005
  Transmission Date: 20100525
  Serious: Yes (Hospitalization, Other)
  Sender: FDA-Public Use
  Company Number: DE-AMGEN-UK349598

PATIENT
  Age: 50 Year
  Sex: Female

DRUGS (7)
  1. NEUPOGEN [Suspect]
     Indication: NEUTROPENIA
     Route: 058
     Dates: start: 20081114
  2. LENALIDOMIDE [Suspect]
     Route: 048
     Dates: start: 20070516, end: 20090414
  3. DEFERASIROX [Suspect]
     Route: 048
     Dates: start: 20080124
  4. CYTARABINE [Concomitant]
     Route: 065
  5. IDARUBICIN HCL [Concomitant]
     Route: 065
  6. ETOPOSIDE [Concomitant]
     Route: 065
  7. ATRA [Concomitant]
     Route: 065

REACTIONS (1)
  - ACUTE MYELOID LEUKAEMIA [None]
